FAERS Safety Report 4409414-7 (Version None)
Quarter: 2004Q3

REPORT INFORMATION
  Report Type: 
  Country: None (occurrence: None)
  Receive Date: 20040727
  Receipt Date: 20040727
  Transmission Date: 20050211
  Serious: Yes (Hospitalization)
  Sender: FDA-Public Use
  Company Number: None

PATIENT
  Age: 80 Year
  Sex: Male
  Weight: 83 kg

DRUGS (20)
  1. COUMADIN [Suspect]
     Dosage: A FIB
     Route: 048
  2. ASPIRIN [Suspect]
  3. TOPROL-XL [Concomitant]
  4. MICRO-K [Concomitant]
  5. PREVACID [Concomitant]
  6. OSCAL [Concomitant]
  7. SYNTHROID [Concomitant]
  8. COMBIVENT [Concomitant]
  9. FLOVENT [Concomitant]
  10. COZAAR [Concomitant]
  11. MIRAPEX [Concomitant]
  12. PRAVACHOL [Concomitant]
  13. FOLIC ACID [Concomitant]
  14. LANOXIN [Concomitant]
  15. ALLOPURINOL [Concomitant]
  16. CARDIZEM [Concomitant]
  17. HUMULIN [Concomitant]
  18. FOSAMAX [Concomitant]
  19. FLOMAX [Concomitant]
  20. ALDACTONE [Concomitant]

REACTIONS (10)
  - CHILLS [None]
  - COLITIS ISCHAEMIC [None]
  - DEHYDRATION [None]
  - DIARRHOEA [None]
  - DIVERTICULUM INTESTINAL [None]
  - GASTROENTERITIS [None]
  - INTERNATIONAL NORMALISED RATIO INCREASED [None]
  - INTESTINAL ULCER [None]
  - PYREXIA [None]
  - RECTAL HAEMORRHAGE [None]
